FAERS Safety Report 17669263 (Version 1)
Quarter: 2020Q2

REPORT INFORMATION
  Report Type: Spontaneous
  Country: US (occurrence: US)
  Receive Date: 20200415
  Receipt Date: 20200415
  Transmission Date: 20200713
  Serious: Yes (Hospitalization)
  Sender: FDA-Public Use
  Company Number: US-TEVA-2020-US-1222464

PATIENT
  Age: 40 Year
  Sex: Female

DRUGS (1)
  1. NORETHINDRONE. [Suspect]
     Active Substance: NORETHINDRONE
     Indication: ORAL CONTRACEPTION
     Dosage: .35 MILLIGRAM DAILY; ORAL CONTRACEPTIVE PILL
     Route: 048

REACTIONS (2)
  - Coronary artery dissection [Recovering/Resolving]
  - Acute myocardial infarction [Unknown]
